FAERS Safety Report 25584989 (Version 1)
Quarter: 2025Q3

REPORT INFORMATION
  Report Type: Spontaneous
  Country: JP (occurrence: JP)
  Receive Date: 20250721
  Receipt Date: 20250721
  Transmission Date: 20251020
  Serious: Yes (Hospitalization, Other)
  Sender: UNICHEM
  Company Number: JP-UNICHEM LABORATORIES LIMITED-UNI-2025-JP-002762

PATIENT

DRUGS (2)
  1. AMIODARONE [Suspect]
     Active Substance: AMIODARONE
     Indication: Hypertrophic cardiomyopathy
     Route: 065
  2. AMIODARONE [Suspect]
     Active Substance: AMIODARONE
     Indication: Ventricular tachycardia
     Route: 065

REACTIONS (5)
  - Hyperammonaemia [Recovering/Resolving]
  - Hepatic encephalopathy [Unknown]
  - Steatohepatitis [Unknown]
  - Urea cycle disorder [Unknown]
  - Hepatotoxicity [Unknown]
